FAERS Safety Report 23467030 (Version 1)
Quarter: 2024Q1

REPORT INFORMATION
  Report Type: Spontaneous
  Country: US (occurrence: US)
  Receive Date: 20240201
  Receipt Date: 20240201
  Transmission Date: 20240409
  Serious: Yes (Other)
  Sender: FDA-Public Use
  Company Number: US-SA-SAC20240131000084

PATIENT
  Age: 58 Year
  Sex: Male
  Weight: 117.93 kg

DRUGS (2)
  1. DUPIXENT [Suspect]
     Active Substance: DUPILUMAB
     Indication: Asthma
     Dosage: 300 MG, QOW
     Route: 058
  2. DUPIXENT [Suspect]
     Active Substance: DUPILUMAB
     Indication: Chronic obstructive pulmonary disease

REACTIONS (3)
  - Pneumonia [Recovered/Resolved]
  - Cough [Recovered/Resolved]
  - Respiration abnormal [Unknown]

NARRATIVE: CASE EVENT DATE: 20231001
